FAERS Safety Report 17467959 (Version 1)
Quarter: 2020Q1

REPORT INFORMATION
  Report Type: Spontaneous
  Country: US (occurrence: US)
  Receive Date: 20200214
  Receipt Date: 20200214
  Transmission Date: 20200409
  Serious: Yes (Other)
  Sender: FDA-Public Use
  Company Number: None

PATIENT
  Age: 81 Year
  Sex: Female

DRUGS (15)
  1. ALBUTEROL INHL NEB SOLN [Concomitant]
     Active Substance: ALBUTEROL
  2. LASIX [Concomitant]
     Active Substance: FUROSEMIDE
  3. OMEPRAZOLE. [Concomitant]
     Active Substance: OMEPRAZOLE
  4. ATROVASTATIN [Concomitant]
     Active Substance: ATORVASTATIN CALCIUM
  5. ALBUTEROL HFA [Concomitant]
     Active Substance: ALBUTEROL SULFATE
  6. OPSUMIT [Suspect]
     Active Substance: MACITENTAN
     Indication: PULMONARY ARTERIAL HYPERTENSION
     Route: 048
     Dates: start: 201711
  7. LACTULOSE. [Concomitant]
     Active Substance: LACTULOSE
  8. IPRATROPIUM INHL SOLN [Concomitant]
  9. ADVAIR DISKUS [Concomitant]
     Active Substance: FLUTICASONE PROPIONATE\SALMETEROL XINAFOATE
  10. SPIRIVA RESPIMAT [Concomitant]
     Active Substance: TIOTROPIUM BROMIDE
  11. SILDENAFIL. [Concomitant]
     Active Substance: SILDENAFIL
  12. DICLOFENAC [Concomitant]
     Active Substance: DICLOFENAC
  13. FERROUS SULFATE. [Concomitant]
     Active Substance: FERROUS SULFATE
  14. SUCRALFATE. [Concomitant]
     Active Substance: SUCRALFATE
  15. LIDOCAINE TOP CREAM [Concomitant]

REACTIONS (1)
  - Dizziness [None]

NARRATIVE: CASE EVENT DATE: 20200123
